FAERS Safety Report 19415353 (Version 1)
Quarter: 2021Q2

REPORT INFORMATION
  Report Type: Spontaneous
  Country: CN (occurrence: CN)
  Receive Date: 20210614
  Receipt Date: 20210614
  Transmission Date: 20210717
  Serious: Yes (Hospitalization, Other)
  Sender: FDA-Public Use
  Company Number: CN-GLAXOSMITHKLINE-CNCH2021036914

PATIENT
  Age: 58 Year
  Sex: Male

DRUGS (10)
  1. NIFEDIPINE. [Concomitant]
     Active Substance: NIFEDIPINE
     Indication: HYPERTENSION
     Dosage: UNK, CONTROLLED?RELEASE TABLETS
     Route: 065
  2. FEBUXOSTAT. [Concomitant]
     Active Substance: FEBUXOSTAT
     Indication: BLOOD URIC ACID
     Dosage: UNK
     Route: 065
  3. SODIUM BICARBONATE. [Concomitant]
     Active Substance: SODIUM BICARBONATE
     Indication: LIPIDS ABNORMAL
  4. SODIUM BICARBONATE. [Concomitant]
     Active Substance: SODIUM BICARBONATE
     Indication: URINE ALKALINISATION THERAPY
     Dosage: UNK
     Route: 065
  5. SODIUM BICARBONATE. [Concomitant]
     Active Substance: SODIUM BICARBONATE
     Indication: GALLBLADDER DISORDER
  6. COLCHICINE. [Concomitant]
     Active Substance: COLCHICINE
     Indication: PROPHYLAXIS
     Dosage: UNK
     Route: 065
  7. SODIUM BICARBONATE. [Concomitant]
     Active Substance: SODIUM BICARBONATE
     Indication: LIVER DISORDER
  8. VITAMIN C [Concomitant]
     Active Substance: ASCORBIC ACID
     Indication: FLUID REPLACEMENT
     Dosage: 2 G
     Route: 065
  9. DICLOFENAC SODIUM. [Suspect]
     Active Substance: DICLOFENAC SODIUM
     Indication: GOUT
     Dosage: 25 MG, QD
     Route: 048
     Dates: start: 20210320, end: 20210521
  10. B 6 VITAMIN [Concomitant]
     Indication: FLUID REPLACEMENT
     Dosage: 0.2 G
     Route: 065

REACTIONS (1)
  - Renal impairment [Recovering/Resolving]

NARRATIVE: CASE EVENT DATE: 20210521
